FAERS Safety Report 9282999 (Version 1)
Quarter: 2013Q2

REPORT INFORMATION
  Report Type: Spontaneous
  Country: US (occurrence: US)
  Receive Date: 20130510
  Receipt Date: 20130510
  Transmission Date: 20140414
  Serious: No
  Sender: FDA-Public Use
  Company Number: US-GLAXOSMITHKLINE-A0972070A

PATIENT
  Age: 61 Year
  Sex: Female
  Weight: 66.4 kg

DRUGS (13)
  1. TYKERB [Suspect]
     Indication: BREAST CANCER
     Dosage: 1500MGD PER DAY
     Route: 048
     Dates: start: 20110714
  2. B VITAMIN [Concomitant]
  3. ENDOCET [Concomitant]
  4. HYDROCHLOROTHIAZIDE + TRIAMTERENE [Concomitant]
  5. BENADRYL [Concomitant]
  6. PANTOPRAZOLE [Concomitant]
  7. ONDANSETRON [Concomitant]
  8. STOOL SOFTENER [Concomitant]
  9. VITAMIN D [Concomitant]
  10. VITAMINE B6 [Concomitant]
  11. VITAMIN B12 [Concomitant]
  12. PROBIOTIC [Concomitant]
  13. PERCOCET [Concomitant]

REACTIONS (4)
  - Fatigue [Unknown]
  - Oropharyngeal pain [Unknown]
  - Dry mouth [Unknown]
  - Aptyalism [Unknown]
